FAERS Safety Report 21879433 (Version 1)
Quarter: 2023Q1

REPORT INFORMATION
  Report Type: Report from Study
  Country: IT (occurrence: IT)
  Receive Date: 20230118
  Receipt Date: 20230118
  Transmission Date: 20230417
  Serious: Yes (Hospitalization, Other)
  Sender: FDA-Public Use
  Company Number: IT-BRISTOL-MYERS SQUIBB COMPANY-BMS-2021-092284

PATIENT
  Age: 10 Year
  Sex: Female
  Weight: 28 kg

DRUGS (4)
  1. METHOTREXATE SODIUM [Suspect]
     Active Substance: METHOTREXATE SODIUM
     Dosage: 15 MG, WEEKLY (15 MILLIGRAM, QWK)
     Route: 058
     Dates: start: 20210406, end: 20210423
  2. ABATACEPT [Suspect]
     Active Substance: ABATACEPT
     Indication: Juvenile idiopathic arthritis
     Dosage: 250 MG FREQ:4 WK;250 MILLIGRAM, Q4WK
     Route: 042
     Dates: start: 20210407, end: 20210720
  3. ABATACEPT [Suspect]
     Active Substance: ABATACEPT
     Dosage: 280 MG FREQ:4 WK;280 MILLIGRAM, Q4WK
     Route: 042
     Dates: start: 20210907
  4. LEFLUNOMIDE [Suspect]
     Active Substance: LEFLUNOMIDE
     Indication: Juvenile idiopathic arthritis
     Dosage: 10 MG, 1X/DAY (10 MILLIGRAM, QD)
     Route: 048
     Dates: start: 20210504, end: 20210720

REACTIONS (1)
  - Hepatitis toxic [Recovered/Resolved]

NARRATIVE: CASE EVENT DATE: 20210727
